FAERS Safety Report 18146003 (Version 2)
Quarter: 2020Q4

REPORT INFORMATION
  Report Type: Report from Study
  Country: DE (occurrence: DE)
  Receive Date: 20200813
  Receipt Date: 20201124
  Transmission Date: 20210113
  Serious: Yes (Hospitalization, Other)
  Sender: FDA-Public Use
  Company Number: DE-PFIZER INC-2020304823

PATIENT
  Age: 47 Year
  Sex: Female

DRUGS (12)
  1. FAMPYRA [Concomitant]
     Active Substance: DALFAMPRIDINE
     Dosage: 10 MG, 2X/DAY
  2. MONTELAIR [Concomitant]
     Active Substance: MONTELUKAST SODIUM
     Dosage: 10 MG
  3. SIRDALUD [Concomitant]
     Active Substance: TIZANIDINE
     Dosage: UNK
  4. OCREVUS [Suspect]
     Active Substance: OCRELIZUMAB
     Indication: RELAPSING-REMITTING MULTIPLE SCLEROSIS
     Dosage: 600 MG
     Route: 042
  5. OCREVUS [Suspect]
     Active Substance: OCRELIZUMAB
     Dosage: 300 MG
     Route: 042
     Dates: start: 20190510
  6. RAMIPRIL. [Concomitant]
     Active Substance: RAMIPRIL
     Dosage: 10 MG
  7. SATIVEX [Concomitant]
     Active Substance: NABIXIMOLS
     Dosage: UNK
  8. CARBIMAZOLE [Concomitant]
     Active Substance: CARBIMAZOLE
     Dosage: 2.5 MG
  9. DEKRISTOL [Concomitant]
     Active Substance: CHOLECALCIFEROL
     Dosage: 20000 IU
  10. AMLODIPINE BESILATE [Suspect]
     Active Substance: AMLODIPINE BESYLATE
     Dosage: 5 MG, 1X/DAY
     Route: 065
     Dates: start: 20191117
  11. FOLIC ACID. [Concomitant]
     Active Substance: FOLIC ACID
     Dosage: 5 MG
  12. TOLPERISONE [Concomitant]
     Active Substance: TOLPERISONE
     Dosage: UNK

REACTIONS (10)
  - Syncope [Recovered/Resolved]
  - Pain [Recovering/Resolving]
  - Circulatory collapse [Recovered/Resolved]
  - Headache [Recovered/Resolved]
  - Gait disturbance [Recovering/Resolving]
  - Fatigue [Recovered/Resolved]
  - Blood pressure fluctuation [Recovered/Resolved]
  - Tachycardia [Recovered/Resolved]
  - Erythema [Recovered/Resolved]
  - Swelling [Recovered/Resolved]

NARRATIVE: CASE EVENT DATE: 20190510
